FAERS Safety Report 26079977 (Version 3)
Quarter: 2025Q4

REPORT INFORMATION
  Report Type: Report from Study
  Country: US (occurrence: US)
  Receive Date: 20251123
  Receipt Date: 20251130
  Transmission Date: 20260118
  Serious: Yes (Other)
  Sender: ABBVIE
  Company Number: US-ABBVIE-6553677

PATIENT
  Age: 69 Year
  Sex: Female

DRUGS (2)
  1. SKYRIZI [Suspect]
     Active Substance: RISANKIZUMAB-RZAA
     Indication: Product used for unknown indication
     Dosage: LAST ADMIN DATE- 2025
     Route: 042
     Dates: start: 20250525
  2. SKYRIZI [Suspect]
     Active Substance: RISANKIZUMAB-RZAA
     Indication: Product used for unknown indication
     Route: 042
     Dates: start: 20250625

REACTIONS (4)
  - Appendicectomy [Unknown]
  - Rash [Recovered/Resolved]
  - Pain [Unknown]
  - Arthropod bite [Unknown]

NARRATIVE: CASE EVENT DATE: 20250101
